FAERS Safety Report 8461138-5 (Version None)
Quarter: 2012Q2

REPORT INFORMATION
  Report Type: 
  Country: None (occurrence: None)
  Receive Date: 20120625
  Receipt Date: 20120621
  Transmission Date: 20120825
  Serious: No
  Sender: FDA-Public Use
  Company Number: US-PFIZER INC-2012026300

PATIENT
  Sex: Male
  Weight: 95.2 kg

DRUGS (4)
  1. CHANTIX [Suspect]
     Indication: SMOKING CESSATION THERAPY
     Dosage: UNK
     Dates: start: 20071001
  2. TAMIFLU [Concomitant]
     Dosage: 75 MG, UNK
  3. CHANTIX [Suspect]
     Dosage: 1 MG, UNK
  4. AMOXICILLIN [Concomitant]
     Dosage: 500 MG, UNK

REACTIONS (1)
  - DYSGEUSIA [None]
